FAERS Safety Report 23003338 (Version 2)
Quarter: 2024Q1

REPORT INFORMATION
  Report Type: Spontaneous
  Country: US (occurrence: US)
  Receive Date: 20230928
  Receipt Date: 20240220
  Transmission Date: 20240410
  Serious: No
  Sender: FDA-Public Use
  Company Number: US-MYLANLABS-2023M1100957

PATIENT
  Age: 75 Year
  Sex: Female
  Weight: 87.99 kg

DRUGS (10)
  1. NORVASC [Suspect]
     Active Substance: AMLODIPINE BESYLATE
     Indication: Blood pressure abnormal
     Dosage: 5 MILLIGRAM, QD, (1 TABLET A DAY FROM 1 YEAR)
     Route: 065
  2. XELJANZ XR [Suspect]
     Active Substance: TOFACITINIB CITRATE
     Indication: Inflammation
     Dosage: 11 MILLIGRAM, QD, (1 TABLET A DAY FROM 4 YEARS)
     Route: 065
  3. XELJANZ XR [Suspect]
     Active Substance: TOFACITINIB CITRATE
     Indication: Arthritis
  4. DELTASONE [Suspect]
     Active Substance: PREDNISONE
     Indication: Arthritis
     Dosage: 1 DOSAGE FORM, QOD, (1 TABLET EVERY OTHER DAY FROM 6 YEARS)
     Route: 065
  5. COZAAR [Suspect]
     Active Substance: LOSARTAN POTASSIUM
     Indication: Blood pressure abnormal
     Dosage: 1 DOSAGE FORM, QD, (1 TABLET A DAY FROM 2 YEARS)
     Route: 065
  6. TRAMADOL HCL [Suspect]
     Active Substance: TRAMADOL HYDROCHLORIDE
     Indication: Product used for unknown indication
     Dosage: UNK, (FROM 9 YEARS)
     Route: 065
  7. NEURONTIN [Suspect]
     Active Substance: GABAPENTIN
     Indication: Product used for unknown indication
     Dosage: UNK, (FROM 11 YEARS)
     Route: 065
  8. TOPROL XL [Suspect]
     Active Substance: METOPROLOL SUCCINATE
     Indication: Blood pressure abnormal
     Dosage: UNK,(FROM 11 YEARS)
     Route: 065
  9. PROTONIX [Suspect]
     Active Substance: PANTOPRAZOLE SODIUM
     Indication: Oesophageal disorder
     Dosage: UNK, (FROM 7 YEARS)
     Route: 065
  10. METHOTREXATE [Suspect]
     Active Substance: METHOTREXATE
     Indication: Hepatic enzyme increased
     Dosage: UNK
     Route: 065

REACTIONS (5)
  - Fall [Recovering/Resolving]
  - Upper limb fracture [Unknown]
  - Urinary tract infection [Recovering/Resolving]
  - Epistaxis [Unknown]
  - Hepatic enzyme increased [Unknown]

NARRATIVE: CASE EVENT DATE: 20230124
